FAERS Safety Report 20280119 (Version 1)
Quarter: 2021Q4

REPORT INFORMATION
  Report Type: Spontaneous
  Country: US (occurrence: None)
  Receive Date: 20211231
  Receipt Date: 20211231
  Transmission Date: 20220303
  Serious: Yes (Life-Threatening, Hospitalization)
  Sender: FDA-Public Use
  Company Number: None

PATIENT
  Age: 19 Year
  Sex: Female
  Weight: 42.75 kg

DRUGS (5)
  1. SULFAMETHOXAZOLE [Suspect]
     Active Substance: SULFAMETHOXAZOLE
     Indication: Acne
     Dosage: OTHER QUANTITY : 1 TABLET(S);?FREQUENCY : TWICE A DAY;?
     Route: 048
     Dates: start: 20211020, end: 20211110
  2. PREDNISONE [Concomitant]
     Active Substance: PREDNISONE
  3. VITAMINS [Concomitant]
     Active Substance: VITAMINS
  4. CALCIUM [Concomitant]
     Active Substance: CALCIUM
  5. PROBIOTICS NOS [Concomitant]
     Active Substance: PROBIOTICS NOS

REACTIONS (9)
  - Pyrexia [None]
  - Malaise [None]
  - Dyspnoea [None]
  - Cough [None]
  - Fatigue [None]
  - Bronchitis [None]
  - Pneumomediastinum [None]
  - Acute respiratory failure [None]
  - Pneumothorax [None]

NARRATIVE: CASE EVENT DATE: 20211110
